FAERS Safety Report 16485441 (Version 4)
Quarter: 2019Q4

REPORT INFORMATION
  Report Type: Report from Study
  Country: FR (occurrence: FR)
  Receive Date: 20190627
  Receipt Date: 20191008
  Transmission Date: 20200122
  Serious: Yes (Death, Hospitalization)
  Sender: FDA-Public Use
  Company Number: FR-EISAI MEDICAL RESEARCH-EC-2019-058066

PATIENT
  Age: 64 Year
  Sex: Male
  Weight: 57.8 kg

DRUGS (11)
  1. LENVATINIB [Suspect]
     Active Substance: LENVATINIB
     Indication: GASTRIC CANCER
     Route: 048
     Dates: start: 20190604, end: 20190617
  2. PANTOPRAZOLE [Concomitant]
     Active Substance: PANTOPRAZOLE
     Dates: start: 200001
  3. TWYNSTA [Concomitant]
     Active Substance: AMLODIPINE BESYLATE\TELMISARTAN
     Dates: start: 200001
  4. ATARAX [Concomitant]
     Active Substance: HYDROXYZINE HYDROCHLORIDE
     Dates: start: 201901
  5. ULCAR [Concomitant]
     Active Substance: SUCRALFATE
     Dates: start: 20190605
  6. LEVOCETIRIZINE [Concomitant]
     Active Substance: LEVOCETIRIZINE
     Dates: start: 200001
  7. IMODIUM [Concomitant]
     Active Substance: LOPERAMIDE HYDROCHLORIDE
     Dates: start: 201901
  8. PRIMPERAN [Concomitant]
     Active Substance: METOCLOPRAMIDE HYDROCHLORIDE
     Dates: start: 201901
  9. PEMBROLIZUMAB. [Suspect]
     Active Substance: PEMBROLIZUMAB
     Indication: GASTRIC CANCER
     Route: 041
     Dates: start: 20190604, end: 20190604
  10. SMECTA [Concomitant]
     Active Substance: MONTMORILLONITE
     Dates: start: 201901
  11. IRON [Concomitant]
     Active Substance: IRON
     Dates: start: 201901

REACTIONS (1)
  - Gastrointestinal necrosis [Fatal]

NARRATIVE: CASE EVENT DATE: 20190617
